FAERS Safety Report 23889170 (Version 1)
Quarter: 2024Q2

REPORT INFORMATION
  Report Type: Spontaneous
  Country: ZA (occurrence: None)
  Receive Date: 20240523
  Receipt Date: 20240523
  Transmission Date: 20240716
  Serious: Yes (Other)
  Sender: FDA-Public Use
  Company Number: 2024A115456

PATIENT
  Age: 69 Year
  Sex: Female

DRUGS (4)
  1. BUDESONIDE\FORMOTEROL [Suspect]
     Active Substance: BUDESONIDE\FORMOTEROL
     Indication: Asthma
     Dosage: 120 DOSE 160/4.5 MCG UNKNOWN UNKNOWN
     Route: 055
  2. THEOPHYLLINE [Concomitant]
     Active Substance: THEOPHYLLINE
     Indication: Bronchospasm
     Route: 048
  3. ASTHAVENT ECOHALER [Concomitant]
     Indication: Bronchospasm
     Dosage: 300UG/INHAL
     Route: 055
  4. SYNALEVE [Concomitant]
     Indication: Pain
     Route: 048

REACTIONS (1)
  - Tuberculosis [Unknown]
